FAERS Safety Report 8342782-2 (Version None)
Quarter: 2012Q2

REPORT INFORMATION
  Report Type: 
  Country: None (occurrence: None)
  Receive Date: 20120503
  Receipt Date: 20120425
  Transmission Date: 20120825
  Serious: Yes (Other)
  Sender: FDA-Public Use
  Company Number: 2012MA005450

PATIENT
  Age: 61 Year
  Sex: Female

DRUGS (6)
  1. INDAPAMIDE [Concomitant]
  2. ESOMEPRAZOLE MAGNESIUM [Concomitant]
  3. PANTOPRAZOLE [Suspect]
     Indication: GASTROOESOPHAGEAL REFLUX DISEASE
     Dosage: 1 DF, BID, PO
     Route: 048
     Dates: start: 20120402, end: 20120410
  4. GAVISCON [Concomitant]
  5. ACETAMINOPHEN [Concomitant]
  6. RANITIDINE [Concomitant]

REACTIONS (6)
  - VISION BLURRED [None]
  - NAUSEA [None]
  - DYSSTASIA [None]
  - DIZZINESS [None]
  - IMPAIRED DRIVING ABILITY [None]
  - ABDOMINAL PAIN [None]
